FAERS Safety Report 9379027 (Version 1)
Quarter: 2013Q2

REPORT INFORMATION
  Report Type: Spontaneous
  Country: US (occurrence: None)
  Receive Date: 20130626
  Receipt Date: 20130626
  Transmission Date: 20140414
  Serious: Yes (Other)
  Sender: FDA-Public Use
  Company Number: 2515444201300003

PATIENT
  Sex: Female

DRUGS (2)
  1. BANANA BOAT SPORT SPF 30 [Suspect]
     Indication: SUNBURN
     Dosage: NO DOSAGE LIMITATIONS
     Dates: start: 20130605
  2. BANANA BOAT SPORT SPF 30 [Suspect]
     Indication: PROPHYLAXIS
     Dosage: NO DOSAGE LIMITATIONS
     Dates: start: 20130605

REACTIONS (2)
  - Throat tightness [None]
  - Hypersensitivity [None]
